FAERS Safety Report 5130360-8 (Version None)
Quarter: 2006Q4

REPORT INFORMATION
  Report Type: 
  Country: None (occurrence: None)
  Receive Date: 20061018
  Receipt Date: 20061018
  Transmission Date: 20070319
  Serious: Yes (Life-Threatening, Hospitalization)
  Sender: FDA-Public Use
  Company Number: None

PATIENT
  Sex: Male
  Weight: 96.6162 kg

DRUGS (1)
  1. AVASTIN [Suspect]
     Indication: HEPATIC NEOPLASM MALIGNANT
     Dosage: 500-1000 MG EVERY 2 WEEKS IV DRIP
     Route: 041
     Dates: start: 20060518, end: 20060928

REACTIONS (2)
  - GRAND MAL CONVULSION [None]
  - LEUKOENCEPHALOPATHY [None]
